FAERS Safety Report 15680985 (Version 1)
Quarter: 2018Q4

REPORT INFORMATION
  Report Type: Spontaneous
  Country: US (occurrence: US)
  Receive Date: 20181203
  Receipt Date: 20181203
  Transmission Date: 20190205
  Serious: Yes (Other)
  Sender: FDA-Public Use
  Company Number: US-GLAXOSMITHKLINE-US2018216826

PATIENT
  Sex: Female

DRUGS (1)
  1. ADVAIR DISKUS [Suspect]
     Active Substance: FLUTICASONE PROPIONATE\SALMETEROL XINAFOATE
     Indication: ASTHMA
     Dosage: UNK
     Route: 055
     Dates: start: 2005

REACTIONS (6)
  - Cataract [Unknown]
  - Sinus disorder [Unknown]
  - Epistaxis [Unknown]
  - Granulomatosis with polyangiitis [Unknown]
  - Iritis [Unknown]
  - Visual impairment [Unknown]

NARRATIVE: CASE EVENT DATE: 2009
